FAERS Safety Report 8948146 (Version 1)
Quarter: 2012Q4

REPORT INFORMATION
  Report Type: Spontaneous
  Country: IT (occurrence: None)
  Receive Date: 20121126
  Receipt Date: 20121126
  Transmission Date: 20130627
  Serious: Yes (Death)
  Sender: FDA-Public Use
  Company Number: 1497080

PATIENT
  Sex: Male

DRUGS (4)
  1. METHOTREXATE [Suspect]
     Indication: OSTEOSARCOMA
     Dosage: 60.000 mg/m^2 , UNKNOWN, UNKNOWN
  2. CISPLATIN [Suspect]
     Indication: OSTEOSARCOMA
     Dosage: 600 mg/m^2, UNKNOWN, UNKNOWN
  3. DOXORUBICIN [Suspect]
     Indication: OSTEOSARCOMA
     Dosage: 420 mg/m^2 , UNKNOWN, UNKNOWN
     Route: 041
  4. IFOSFAMIDE [Suspect]
     Indication: OSTEOSARCOMA
     Dosage: 40,000 mg/m^2, UNKNOWN , UNKNOWN

REACTIONS (1)
  - Acute lymphocytic leukaemia [None]
